FAERS Safety Report 9324164 (Version 4)
Quarter: 2013Q4

REPORT INFORMATION
  Report Type: Spontaneous
  Country: US (occurrence: US)
  Receive Date: 20130603
  Receipt Date: 20131028
  Transmission Date: 20140711
  Serious: Yes (Congenital Anomaly, Other)
  Sender: FDA-Public Use
  Company Number: US-PFIZER INC-2013164402

PATIENT
  Sex: Male
  Weight: 3.57 kg

DRUGS (12)
  1. ZOLOFT [Suspect]
     Indication: DEPRESSION
     Dosage: UNK
     Route: 064
     Dates: start: 200408
  2. ZOLOFT [Suspect]
     Dosage: 50 MG, 1X/DAY AT BED TIME
     Route: 064
     Dates: start: 20040606, end: 20060817
  3. ALBUTEROL [Concomitant]
     Dosage: 2.5 MG, 2X/DAY
     Route: 064
     Dates: start: 20051031
  4. PREDNISONE [Concomitant]
     Dosage: 20 MG, 1X/DAY
     Route: 064
     Dates: start: 20051029
  5. SYNTHROID [Concomitant]
     Dosage: 0.025 MG, 1X/DAY
     Route: 064
     Dates: start: 20050802
  6. PRENATAL VITAMINS [Concomitant]
     Dosage: 1 DF, 1X/DAY
     Route: 064
     Dates: start: 20051031
  7. REGLAN [Concomitant]
     Dosage: 10 MG, UNK
     Route: 064
     Dates: start: 20050829
  8. ZITHROMAX [Concomitant]
     Dosage: UNK
     Route: 064
     Dates: start: 20051029
  9. MORPHINE [Concomitant]
     Dosage: 10 MG, UNK
     Route: 064
     Dates: start: 20051031
  10. TYLENOL WITH CODEINE [Concomitant]
     Dosage: 2 DF, UNK
     Route: 064
     Dates: start: 20051031
  11. PHENERGAN [Concomitant]
     Indication: NAUSEA
     Dosage: 12.5 MG, UNK
     Route: 064
     Dates: start: 20051031
  12. VICODIN [Concomitant]
     Dosage: UNK
     Route: 064
     Dates: start: 20051031

REACTIONS (3)
  - Foetal exposure during pregnancy [Unknown]
  - Hypospadias [Unknown]
  - Chordee [Unknown]
